FAERS Safety Report 17570046 (Version 6)
Quarter: 2025Q3

REPORT INFORMATION
  Report Type: Spontaneous
  Country: EU (occurrence: EU)
  Receive Date: 20200323
  Receipt Date: 20250702
  Transmission Date: 20251021
  Serious: Yes (Hospitalization, Other)
  Sender: AUROBINDO
  Company Number: EU-PFIZER INC-2020101169

PATIENT
  Age: 55 Year
  Sex: Male

DRUGS (15)
  1. AMLODIPINE [Suspect]
     Active Substance: AMLODIPINE BESYLATE
     Indication: Scleroderma
     Route: 065
  2. AMLODIPINE [Suspect]
     Active Substance: AMLODIPINE BESYLATE
     Indication: Vasodilatation
  3. METOPROLOL [Suspect]
     Active Substance: METOPROLOL
     Indication: Scleroderma
     Route: 065
  4. OMEPRAZOLE [Suspect]
     Active Substance: OMEPRAZOLE
     Indication: Gastrointestinal disorder
     Route: 065
  5. OMEPRAZOLE [Suspect]
     Active Substance: OMEPRAZOLE
     Indication: Prophylaxis against gastrointestinal ulcer
  6. BOSENTAN [Suspect]
     Active Substance: BOSENTAN
     Indication: Skin ulcer
     Route: 048
  7. BOSENTAN [Suspect]
     Active Substance: BOSENTAN
     Indication: Systemic scleroderma
  8. METHYLPREDNISOLONE [Suspect]
     Active Substance: METHYLPREDNISOLONE
     Indication: Scleroderma
     Route: 065
  9. PENTOXIFYLLINE [Suspect]
     Active Substance: PENTOXIFYLLINE
     Indication: Scleroderma
     Route: 065
  10. PENTOXIFYLLINE [Suspect]
     Active Substance: PENTOXIFYLLINE
     Indication: Vasodilatation
  11. SULODEXIDE [Suspect]
     Active Substance: SULODEXIDE
     Indication: Scleroderma
     Route: 065
  12. SULODEXIDE [Suspect]
     Active Substance: SULODEXIDE
     Indication: Vasodilatation
  13. CYCLOPHOSPHAMIDE [Suspect]
     Active Substance: CYCLOPHOSPHAMIDE
     Indication: Product used for unknown indication
     Route: 048
  14. GEMCITABINE [Suspect]
     Active Substance: GEMCITABINE
     Indication: Chemotherapy
     Route: 065
  15. CARBOPLATIN [Suspect]
     Active Substance: CARBOPLATIN
     Indication: Chemotherapy
     Route: 065

REACTIONS (30)
  - Peripheral artery occlusion [Recovered/Resolved]
  - Peripheral coldness [Recovered/Resolved]
  - Metastatic neoplasm [Unknown]
  - Peripheral ischaemia [Recovered/Resolved]
  - Paraesthesia [Recovered/Resolved]
  - Cushing^s syndrome [Unknown]
  - Mitral valve prolapse [Unknown]
  - Metabolic syndrome [Unknown]
  - Leukopenia [Unknown]
  - Anaemia [Unknown]
  - Glucose tolerance impaired [Unknown]
  - Pulse absent [Recovered/Resolved]
  - Aphasia [Unknown]
  - Extremity necrosis [Unknown]
  - Drug dependence [Unknown]
  - Endarterectomy [Unknown]
  - Lung adenocarcinoma [Unknown]
  - Obesity [Unknown]
  - Biopsy lymph gland [Unknown]
  - Hypertension [Unknown]
  - Dyslipidaemia [Unknown]
  - Inflammation [Unknown]
  - Pallor [Recovered/Resolved]
  - Anxiety [Unknown]
  - Hilar lymphadenopathy [Unknown]
  - Speech disorder [Unknown]
  - Radiotherapy to brain [Unknown]
  - Pleural mass [Unknown]
  - Pain in extremity [Unknown]
  - Drug ineffective [Unknown]
